FAERS Safety Report 25433077 (Version 2)
Quarter: 2025Q2

REPORT INFORMATION
  Report Type: Spontaneous
  Country: US (occurrence: None)
  Receive Date: 20250613
  Receipt Date: 20250613
  Transmission Date: 20250717
  Serious: Yes (Hospitalization)
  Sender: MDD OPERATIONS
  Company Number: US-MDD US Operations-MDD202409-003387

PATIENT
  Age: 69 Year
  Sex: Female

DRUGS (1)
  1. APOKYN [Suspect]
     Active Substance: APOMORPHINE HYDROCHLORIDE
     Indication: Parkinson^s disease
     Dates: start: 20240530, end: 2024

REACTIONS (2)
  - Urinary tract infection [Unknown]
  - Hallucination [Unknown]

NARRATIVE: CASE EVENT DATE: 20240101
